FAERS Safety Report 4353774-2 (Version None)
Quarter: 2004Q2

REPORT INFORMATION
  Report Type: 
  Country: None (occurrence: None)
  Receive Date: 20040430
  Receipt Date: 20031111
  Transmission Date: 20050107
  Serious: Yes (Death)
  Sender: FDA-Public Use
  Company Number: KDL054757

PATIENT
  Age: 82 Year
  Sex: Male
  Weight: 61.3 kg

DRUGS (3)
  1. EPOGEN [Suspect]
     Indication: ANAEMIA OF MALIGNANT DISEASE
     Dosage: 40000 U, WEEKLY
     Dates: start: 20020201, end: 20020401
  2. WARFARIN SODIUM [Concomitant]
  3. BLOOD CELLS, PACKED HUMAN [Concomitant]

REACTIONS (2)
  - MALIGNANT NEOPLASM PROGRESSION [None]
  - WEIGHT DECREASED [None]
